FAERS Safety Report 21390246 (Version 1)
Quarter: 2022Q3

REPORT INFORMATION
  Report Type: Spontaneous
  Country: US (occurrence: US)
  Receive Date: 20220929
  Receipt Date: 20220929
  Transmission Date: 20221027
  Serious: No
  Sender: FDA-Public Use
  Company Number: US-BRISTOL-MYERS SQUIBB COMPANY-2022-113178

PATIENT
  Age: 66 Year
  Sex: Male
  Weight: 46.31 kg

DRUGS (1)
  1. REVLIMID [Suspect]
     Active Substance: LENALIDOMIDE
     Indication: Plasma cell myeloma
     Route: 048
     Dates: start: 20220906

REACTIONS (3)
  - Exfoliative rash [Unknown]
  - Rash pruritic [Unknown]
  - Diarrhoea [Unknown]
